FAERS Safety Report 15210971 (Version 2)
Quarter: 2018Q3

REPORT INFORMATION
  Report Type: Report from Study
  Country: IT (occurrence: IT)
  Receive Date: 20180728
  Receipt Date: 20180824
  Transmission Date: 20181010
  Serious: Yes (Other)
  Sender: FDA-Public Use
  Company Number: IT-TEVA-2018-IT-930062

PATIENT
  Age: 38 Year
  Sex: Male

DRUGS (4)
  1. NOZINAN 25 MG COMPRESSE RIVESTITE CON FILM [Concomitant]
     Active Substance: LEVOMEPROMAZINE
     Route: 048
  2. QUETIAPINE. [Suspect]
     Active Substance: QUETIAPINE
     Indication: SUBSTANCE USE
     Route: 048
     Dates: start: 20180605, end: 20180605
  3. TRITTICO 100 MG COMPRESSE RIVESTITE CON FILM [Suspect]
     Active Substance: TRAZODONE HYDROCHLORIDE
     Indication: SUBSTANCE USE
     Route: 048
     Dates: start: 20180605, end: 20180605
  4. CLONAZEPAM. [Concomitant]
     Active Substance: CLONAZEPAM
     Route: 048

REACTIONS (5)
  - Respiratory failure [Recovering/Resolving]
  - Drug abuse [Recovering/Resolving]
  - Tachycardia [Recovering/Resolving]
  - Troponin increased [Recovering/Resolving]
  - Sopor [Recovering/Resolving]

NARRATIVE: CASE EVENT DATE: 20180605
